FAERS Safety Report 5209333-2 (Version None)
Quarter: 2006Q4

REPORT INFORMATION
  Report Type: 
  Country: None (occurrence: None)
  Receive Date: 20061101
  Receipt Date: 20060625
  Transmission Date: 20070319
  Serious: No
  Sender: FDA-Public Use
  Company Number: 2006PV016391

PATIENT
  Age: 65 Year
  Sex: Male

DRUGS (5)
  1. SYMLIN [Suspect]
     Indication: DIABETES MELLITUS NON-INSULIN-DEPENDENT
     Dosage: 60 MCG;BID;SC
     Route: 058
     Dates: start: 20060624
  2. NOVOLOG [Concomitant]
  3. HUMULIN 70/30 [Concomitant]
  4. LANTUS [Concomitant]
  5. INSULIN SSI [Concomitant]

REACTIONS (1)
  - BLOOD GLUCOSE FLUCTUATION [None]
